FAERS Safety Report 7254189-X (Version None)
Quarter: 2011Q1

REPORT INFORMATION
  Report Type: 
  Country: None (occurrence: None)
  Receive Date: 20110129
  Receipt Date: 20100310
  Transmission Date: 20110831
  Serious: No
  Sender: FDA-Public Use
  Company Number: US-ABBOTT-10P-163-0625943-00

PATIENT
  Sex: Female
  Weight: 61.29 kg

DRUGS (9)
  1. DOXYCYCLINE [Suspect]
     Indication: LYMPHADENOPATHY
  2. IMURAN [Concomitant]
     Indication: PRODUCT USED FOR UNKNOWN INDICATION
  3. VITAMIN D [Concomitant]
     Indication: PRODUCT USED FOR UNKNOWN INDICATION
     Dosage: DAILY, BUT ON OCCASION FORGETS
  4. PROBIOTICS [Concomitant]
     Indication: ANTIBIOTIC THERAPY
     Dates: start: 20100201
  5. DOXYCYCLINE [Suspect]
     Indication: EAR INFECTION
     Dates: start: 20100101, end: 20100118
  6. PROBIOTICS [Concomitant]
     Indication: DIARRHOEA
  7. HUMIRA [Suspect]
     Indication: COLITIS ULCERATIVE
     Route: 058
     Dates: start: 20080801
  8. FOLIC ACID [Concomitant]
     Indication: PRODUCT USED FOR UNKNOWN INDICATION
     Dosage: DAILY, BUT ON OCCASION FORGETS TO TAKE
  9. LIALDA [Concomitant]
     Indication: PRODUCT USED FOR UNKNOWN INDICATION

REACTIONS (6)
  - VISUAL IMPAIRMENT [None]
  - LYMPHADENOPATHY [None]
  - DIARRHOEA [None]
  - FACIAL PAIN [None]
  - TONSILLAR INFLAMMATION [None]
  - LOCAL SWELLING [None]
